FAERS Safety Report 9157008 (Version 1)
Quarter: 2013Q1

REPORT INFORMATION
  Report Type: Spontaneous
  Country: GB (occurrence: None)
  Receive Date: 20130212
  Receipt Date: 20130212
  Transmission Date: 20140127
  Serious: Yes (Hospitalization, Other)
  Sender: FDA-Public Use
  Company Number: AUR-APL-2013-01251

PATIENT
  Age: 36 Year
  Sex: Female

DRUGS (6)
  1. FLUOXETINE [Suspect]
     Indication: ANXIETY
     Route: 048
     Dates: start: 2008, end: 2008
  2. FLUOXETINE [Suspect]
     Indication: DEPRESSION
     Route: 048
     Dates: start: 2008, end: 2008
  3. FLUOXETINE [Suspect]
     Route: 048
     Dates: start: 2008, end: 2008
  4. FLUOXETINE [Suspect]
     Route: 048
     Dates: start: 2008, end: 2008
  5. FLUOXETINE [Suspect]
     Route: 048
     Dates: start: 2008, end: 2008
  6. FLUOXETINE [Suspect]
     Route: 048
     Dates: start: 2008, end: 2008

REACTIONS (5)
  - Disturbance in attention [None]
  - Personality change [None]
  - Feeling abnormal [None]
  - Anger [None]
  - Energy increased [None]
